FAERS Safety Report 9697577 (Version 3)
Quarter: 2014Q1

REPORT INFORMATION
  Report Type: Report from Study
  Country: CA (occurrence: CA)
  Receive Date: 20131120
  Receipt Date: 20140305
  Transmission Date: 20141002
  Serious: Yes (Hospitalization)
  Sender: FDA-Public Use
  Company Number: CA-ELI_LILLY_AND_COMPANY-CA201311001736

PATIENT
  Age: 69 Year
  Sex: Male
  Weight: 83.2 kg

DRUGS (6)
  1. NECITUMUMAB (11F8) (LY3012211) [Suspect]
     Indication: NON-SMALL CELL LUNG CANCER
     Dosage: 800 MG, CYCLICAL
     Route: 042
     Dates: start: 20131023
  2. GEMCITABINE HYDROCHLORIDE [Suspect]
     Indication: NON-SMALL CELL LUNG CANCER
     Dosage: 1250 MG/M2, CYCLICAL
     Route: 042
     Dates: start: 20131023
  3. CISPLATIN [Suspect]
     Indication: NON-SMALL CELL LUNG CANCER
     Dosage: 75 MG/M2, CYCLICAL
     Route: 042
     Dates: start: 20131023
  4. VALSARTAN [Concomitant]
     Indication: BLOOD PRESSURE
     Dosage: UNK UNK, QD
     Dates: start: 2010
  5. TAMSULOSIN [Concomitant]
     Dosage: UNK, QD
     Dates: start: 2010
  6. COLACE [Concomitant]
     Indication: PROPHYLAXIS
     Dosage: UNK, PRN

REACTIONS (1)
  - Urosepsis [Recovered/Resolved]
